FAERS Safety Report 16713533 (Version 3)
Quarter: 2019Q3

REPORT INFORMATION
  Report Type: Report from Study
  Country: None (occurrence: ES)
  Receive Date: 20190819
  Receipt Date: 20190920
  Transmission Date: 20191004
  Serious: Yes (Other)
  Sender: FDA-Public Use
  Company Number: ES-ABBVIE-19K-144-2837929-00

PATIENT
  Age: 71 Year
  Sex: Female
  Weight: 63 kg

DRUGS (1)
  1. DUODOPA [Suspect]
     Active Substance: CARBIDOPA\LEVODOPA
     Indication: PARKINSON^S DISEASE
     Route: 050
     Dates: start: 20190207

REACTIONS (13)
  - Abnormal behaviour [Not Recovered/Not Resolved]
  - Decreased appetite [Recovered/Resolved]
  - Illogical thinking [Unknown]
  - Aggression [Recovered/Resolved]
  - Hypotension [Recovering/Resolving]
  - Skin laceration [Recovering/Resolving]
  - Hallucination [Unknown]
  - Memory impairment [Not Recovered/Not Resolved]
  - On and off phenomenon [Not Recovered/Not Resolved]
  - Mental impairment [Unknown]
  - Fall [Recovering/Resolving]
  - Speech disorder [Recovered/Resolved]
  - Dementia [Not Recovered/Not Resolved]

NARRATIVE: CASE EVENT DATE: 2019
